FAERS Safety Report 6260237-6 (Version None)
Quarter: 2009Q4

REPORT INFORMATION
  Report Type: 
  Country: None (occurrence: None)
  Receive Date: 20090706
  Receipt Date: 20090617
  Transmission Date: 20100525
  Serious: Yes (Death, Hospitalization)
  Sender: FDA-Public Use
  Company Number: 8048317

PATIENT
  Age: 70 Year
  Sex: Female

DRUGS (21)
  1. LEVOCETIRIZINE HCL [Suspect]
     Indication: RHINITIS ALLERGIC
     Dosage: 5 MG /D PO
     Route: 048
     Dates: start: 20081202, end: 20081216
  2. LEVOCETIRIZINE HCL [Suspect]
     Indication: RHINITIS ALLERGIC
     Dosage: 5 MG /D PO
     Route: 048
     Dates: start: 20081231, end: 20090114
  3. FLUARIX /00027001/ [Suspect]
     Indication: IMMUNISATION
     Dosage: NI IM
     Route: 030
     Dates: start: 20081007, end: 20081007
  4. DICLOFENAC POTASSIUM [Suspect]
     Indication: OSTEOARTHRITIS
     Dosage: 75 MG /D PO
     Route: 048
     Dates: start: 20070326, end: 20070401
  5. DICLOFENAC POTASSIUM [Suspect]
     Indication: TOOTH EXTRACTION
     Dosage: 75 MG /D PO
     Route: 048
     Dates: start: 20070326, end: 20070401
  6. DICLOFENAC POTASSIUM [Suspect]
     Indication: PAIN
     Dosage: 75 MG /D PO
     Route: 048
     Dates: start: 20070908, end: 20071006
  7. DICLOFENAC POTASSIUM [Suspect]
     Indication: PAIN
     Dosage: 75 MG /D PO
     Route: 048
     Dates: start: 20071124, end: 20071222
  8. DICLOFENAC POTASSIUM [Suspect]
     Indication: PAIN
     Dosage: 75 MG /D PO
     Route: 048
     Dates: start: 20081225, end: 20081228
  9. DICLOFENAC POTASSIUM [Suspect]
     Indication: PAIN
     Dosage: 75 MG /D PO
     Route: 048
     Dates: start: 20081231, end: 20090102
  10. DICLOFENAC POTASSIUM [Suspect]
     Indication: PAIN
     Dosage: 75 MG /D PO
     Route: 048
     Dates: start: 20090106, end: 20090109
  11. DICLOFENAC SODIUM [Suspect]
     Indication: MYALGIA
     Dosage: 100 MG /D PO
     Route: 048
     Dates: start: 20080507, end: 20080514
  12. DICLOFENAC SODIUM [Suspect]
     Indication: MYALGIA
     Dosage: 100 MG /D PO
     Route: 048
     Dates: start: 20080701, end: 20080708
  13. CLINDAMYCIN [Suspect]
     Dosage: 600 MG /D PO
     Route: 048
     Dates: start: 20081225, end: 20081228
  14. ERYTHROMYCIN [Suspect]
     Indication: TOOTH EXTRACTION
     Dosage: 2000 MG /D PO
     Route: 048
     Dates: start: 20081230, end: 20090102
  15. ERYTHROMYCIN [Suspect]
     Indication: TOOTH EXTRACTION
     Dosage: 2000 MG /D PO
     Route: 048
     Dates: start: 20090106, end: 20090109
  16. CHLORPHENIRMINE [Suspect]
     Indication: ECZEMA ASTEATOTIC
     Dosage: 16 MG /D PO
     Route: 048
     Dates: start: 20070326, end: 20070423
  17. CHLORPHENIRMINE [Suspect]
     Indication: PRURITUS
     Dosage: 16 MG /D PO
     Route: 048
     Dates: start: 20070326, end: 20070423
  18. CHLORPHENIRMINE [Suspect]
     Indication: ECZEMA ASTEATOTIC
     Dosage: 16 MG /D PO
     Route: 048
     Dates: start: 20090106, end: 20090113
  19. CHLORPHENIRMINE [Suspect]
     Indication: PRURITUS
     Dosage: 16 MG /D PO
     Route: 048
     Dates: start: 20090106, end: 20090113
  20. FEXOFENADINE [Suspect]
     Indication: ECZEMA ASTEATOTIC
     Dosage: 120 MG /D PO
     Route: 048
     Dates: start: 20081129, end: 20081206
  21. CEPHALEXIN [Suspect]
     Indication: FURUNCLE
     Dosage: 2000 MG /D PO
     Route: 048
     Dates: start: 20070922, end: 20070926

REACTIONS (33)
  - ACUTE MYELOID LEUKAEMIA [None]
  - ACUTE RESPIRATORY FAILURE [None]
  - ACUTE SINUSITIS [None]
  - BLOOD PRESSURE SYSTOLIC INCREASED [None]
  - C-REACTIVE PROTEIN INCREASED [None]
  - CARDIOMEGALY [None]
  - CHEST X-RAY ABNORMAL [None]
  - CHILLS [None]
  - DERMATITIS ALLERGIC [None]
  - DIZZINESS [None]
  - DYSPNOEA EXERTIONAL [None]
  - ECZEMA ASTEATOTIC [None]
  - ERYTHEMA [None]
  - FEBRILE NEUTROPENIA [None]
  - HEART RATE INCREASED [None]
  - HYPERTENSION [None]
  - INSOMNIA [None]
  - LUNG INFILTRATION [None]
  - OSTEOARTHRITIS [None]
  - OSTEOPOROSIS [None]
  - PANCYTOPENIA [None]
  - PERIODONTITIS [None]
  - PLEURAL EFFUSION [None]
  - PNEUMONIA [None]
  - PRURITUS [None]
  - PULMONARY OEDEMA [None]
  - RASH [None]
  - REFUSAL OF TREATMENT BY PATIENT [None]
  - RESPIRATORY DISORDER [None]
  - RESPIRATORY RATE INCREASED [None]
  - RHINITIS ALLERGIC [None]
  - TOOTH EXTRACTION [None]
  - VITAMIN B12 DECREASED [None]
